FAERS Safety Report 6613444-4 (Version None)
Quarter: 2010Q1

REPORT INFORMATION
  Report Type: 
  Country: None (occurrence: None)
  Receive Date: 20100304
  Receipt Date: 20100211
  Transmission Date: 20100710
  Serious: Yes (Other)
  Sender: FDA-Public Use
  Company Number: PHHY2010ZA08114

PATIENT
  Sex: Female

DRUGS (7)
  1. EXFORGE [Suspect]
     Indication: HYPERTENSION
     Dosage: UNK
     Route: 048
     Dates: start: 20091008
  2. PLENISH K [Concomitant]
     Dosage: 600 MG, UNK
     Dates: start: 20091008
  3. RENEZIDE [Concomitant]
     Dosage: 1 DAILY
     Dates: start: 20091008
  4. ECOTRIN [Concomitant]
     Dosage: UNK
     Dates: start: 20091008
  5. MICHOL [Concomitant]
     Dosage: UNK
     Dates: start: 20091008
  6. CANDAVORE [Concomitant]
     Dosage: UNK
     Dates: start: 20091008
  7. XANOR - S R [Concomitant]
     Dosage: UNK
     Dates: start: 20091008

REACTIONS (2)
  - BLOOD PRESSURE INADEQUATELY CONTROLLED [None]
  - LOWER LIMB FRACTURE [None]
